FAERS Safety Report 8964897 (Version 3)
Quarter: 2013Q1

REPORT INFORMATION
  Report Type: Spontaneous
  Country: US (occurrence: US)
  Receive Date: 20121213
  Receipt Date: 20130213
  Transmission Date: 20140127
  Serious: Yes (Hospitalization, Other)
  Sender: FDA-Public Use
  Company Number: US-009507513-1212USA004845

PATIENT
  Age: 49 None
  Sex: Male

DRUGS (3)
  1. PEGINTRON [Suspect]
     Indication: HEPATITIS C
     Dosage: REDIPEN
     Dates: start: 20121126, end: 20121224
  2. RIBAVIRIN [Suspect]
     Indication: HEPATITIS C
     Dosage: UNK
     Dates: start: 20121126, end: 20121224
  3. VICTRELIS [Suspect]
     Indication: HEPATITIS C
     Dosage: UNK
     Dates: start: 20121210, end: 20121212

REACTIONS (11)
  - Coronary artery occlusion [Unknown]
  - Myocardial infarction [Unknown]
  - Cardiac arrest [Unknown]
  - Muscle atrophy [Unknown]
  - Influenza like illness [Unknown]
  - Chest pain [Unknown]
  - Fatigue [Unknown]
  - Osteopenia [Unknown]
  - Pain [Unknown]
  - Influenza like illness [Unknown]
  - Fatigue [Unknown]
